FAERS Safety Report 4581558-9 (Version None)
Quarter: 2005Q1

REPORT INFORMATION
  Report Type: 
  Country: None (occurrence: None)
  Receive Date: 20050214
  Receipt Date: 20041117
  Transmission Date: 20050727
  Serious: No
  Sender: FDA-Public Use
  Company Number: US-GLAXOSMITHKLINE-A0534313A

PATIENT
  Age: 48 Year
  Sex: Female

DRUGS (5)
  1. LAMICTAL [Suspect]
     Dosage: 350MG TWICE PER DAY
     Route: 048
  2. ZETIA [Concomitant]
  3. DETROL LA [Concomitant]
  4. TEMAZEPAM [Concomitant]
  5. ZOLOFT [Concomitant]

REACTIONS (4)
  - FEELING COLD [None]
  - HOT FLUSH [None]
  - POLLAKIURIA [None]
  - URINARY TRACT INFECTION [None]
